FAERS Safety Report 23471130 (Version 1)
Quarter: 2024Q1

REPORT INFORMATION
  Report Type: Spontaneous
  Country: None (occurrence: A1)
  Receive Date: 20240202
  Receipt Date: 20240202
  Transmission Date: 20240409
  Serious: No
  Sender: FDA-Public Use
  Company Number: A1-Amphastar Pharmaceuticals, Inc.-2152496

PATIENT

DRUGS (5)
  1. GLUCAGON [Suspect]
     Active Substance: GLUCAGON\GLUCAGON HYDROCHLORIDE\WATER
     Indication: Blood glucose decreased
  2. DEVICE [Suspect]
     Active Substance: DEVICE
  3. DEVICE [Suspect]
     Active Substance: DEVICE
  4. DEVICE [Suspect]
     Active Substance: DEVICE
  5. DEVICE [Suspect]
     Active Substance: DEVICE

REACTIONS (1)
  - No adverse event [None]
